FAERS Safety Report 12529512 (Version 2)
Quarter: 2016Q3

REPORT INFORMATION
  Report Type: Spontaneous
  Country: JP (occurrence: JP)
  Receive Date: 20160706
  Receipt Date: 20160706
  Transmission Date: 20161109
  Serious: Yes (Other)
  Sender: FDA-Public Use
  Company Number: JP-CIPLA LTD.-2011JP00151

PATIENT
  Age: 43 Year
  Sex: Female
  Weight: 148 kg

DRUGS (11)
  1. APREPITANT. [Interacting]
     Active Substance: APREPITANT
     Dosage: 80 MG ON DAYS 2, 3, 9, 10, 16, AND 17
  2. CARBOPLATIN. [Suspect]
     Active Substance: CARBOPLATIN
     Indication: CERVIX CANCER METASTATIC
     Dosage: UNK, 4 CYCLES
     Route: 065
  3. CISPLATIN. [Interacting]
     Active Substance: CISPLATIN
     Indication: CERVIX CANCER METASTATIC
     Dosage: 60 MG/M2, ON DAY 1 EVERY 4 WEEKS
     Route: 065
  4. WARFARIN [Suspect]
     Active Substance: WARFARIN
     Indication: THROMBOSIS PROPHYLAXIS
     Dosage: 1 MG/DAY
     Route: 065
  5. IRINOTECAN [Suspect]
     Active Substance: IRINOTECAN
     Indication: CERVIX CANCER METASTATIC
     Dosage: 60 MG/M2, ON DAYS 1, 8, AND 15, EVERY 4 WEEKS
     Route: 065
  6. DEXAMETHASONE. [Interacting]
     Active Substance: DEXAMETHASONE
     Dosage: 13.2 MG ON DAY 1
     Route: 065
  7. WARFARIN [Interacting]
     Active Substance: WARFARIN
     Dosage: 2 MG/DAY, IN THE SECOND CYCLE
     Route: 065
  8. GRANISETRON [Suspect]
     Active Substance: GRANISETRON
     Dosage: 3 MG, ON DAYS 1, 8, AND 15
     Route: 065
  9. APREPITANT. [Interacting]
     Active Substance: APREPITANT
     Dosage: 125 MG ON DAYS 1, 8, AND 15
     Route: 065
  10. PACLITAXEL. [Suspect]
     Active Substance: PACLITAXEL
     Indication: CERVIX CANCER METASTATIC
     Dosage: UNK
     Route: 065
  11. DEXAMETHASONE. [Interacting]
     Active Substance: DEXAMETHASONE
     Dosage: 6.6 MG ON DAYS 2, 3, 8, AND 15
     Route: 065

REACTIONS (6)
  - Vomiting [Unknown]
  - Neoplasm progression [Unknown]
  - Nausea [Unknown]
  - International normalised ratio increased [Recovered/Resolved]
  - Decreased appetite [Unknown]
  - Drug interaction [Unknown]
